FAERS Safety Report 17334342 (Version 3)
Quarter: 2020Q2

REPORT INFORMATION
  Report Type: Other
  Country: US (occurrence: US)
  Receive Date: 20200128
  Receipt Date: 20200430
  Transmission Date: 20200713
  Serious: Yes (Hospitalization)
  Sender: FDA-Public Use
  Company Number: US-ACORDA-ACO_163316_2020

PATIENT
  Sex: Female
  Weight: 79.82 kg

DRUGS (40)
  1. ZETIA [Concomitant]
     Active Substance: EZETIMIBE
     Indication: PRODUCT USED FOR UNKNOWN INDICATION
     Dosage: 10 MILLIGRAM, QD
     Route: 065
  2. LORAZEPAM. [Concomitant]
     Active Substance: LORAZEPAM
     Indication: ANXIETY
     Dosage: 0.5 MILLIGRAM, QAM AND 2 QHS, DO NOT TAKE WITHIN 3 HRSOF PERCOCET
     Route: 048
     Dates: start: 20191228
  3. MOBIC [Concomitant]
     Active Substance: MELOXICAM
     Indication: ARTHRALGIA
     Dosage: 15 MILLIGRAM, QD
     Route: 048
     Dates: start: 20200117
  4. INBRIJA [Suspect]
     Active Substance: LEVODOPA
     Indication: PARKINSON^S DISEASE
     Dosage: 42 MILLIGRAM, 2 CAPSULES, PRN, NOT TO EXCEED 5 DOSES A DAY.
     Dates: start: 2019, end: 201912
  5. OXYGEN. [Concomitant]
     Active Substance: OXYGEN
     Indication: DYSPNOEA
     Dosage: CONTINOUS 3 LTR
     Route: 065
  6. CARBIDOPA/LEVODOPA [Concomitant]
     Active Substance: CARBIDOPA\LEVODOPA
     Indication: PARKINSON^S DISEASE
     Dosage: 25-100 MG, TID
     Route: 048
     Dates: start: 20191114
  7. CITALOPRAM [Concomitant]
     Active Substance: CITALOPRAM HYDROBROMIDE
     Indication: DEPRESSION
     Dosage: 40 MILLIGRAM, QD
     Route: 048
     Dates: start: 20191016
  8. CLOPIDOGREL [Concomitant]
     Active Substance: CLOPIDOGREL BISULFATE
     Indication: ANTICOAGULANT THERAPY
     Dosage: 75 MILLIGRAM, QD
     Route: 048
     Dates: start: 20191219
  9. COLACE [Concomitant]
     Active Substance: DOCUSATE SODIUM
     Indication: ABDOMINAL DISCOMFORT
     Dosage: 100 MILLIGRAM, QD
     Route: 048
     Dates: start: 20200106
  10. INBRIJA [Suspect]
     Active Substance: LEVODOPA
     Indication: COUGH
  11. PLAVIX [Concomitant]
     Active Substance: CLOPIDOGREL BISULFATE
     Indication: PRODUCT USED FOR UNKNOWN INDICATION
     Dosage: 75 MILLIGRAM, QD
     Route: 048
  12. GABAPENTIN. [Concomitant]
     Active Substance: GABAPENTIN
     Indication: PAIN
     Dosage: 100 MILLIGRAM, 2 CS QHS
     Route: 048
     Dates: start: 20191113
  13. PREDNISONE. [Concomitant]
     Active Substance: PREDNISONE
     Indication: RESPIRATORY DISORDER
     Dosage: 5 MILLIGRAM, 1/2 QD
     Route: 048
     Dates: start: 20200106
  14. POTASSIUM CHLORIDE. [Concomitant]
     Active Substance: POTASSIUM CHLORIDE
     Indication: SUPPLEMENTATION THERAPY
     Dosage: 10 MILLIEQUIVALENT, 3 TABLET QD
     Route: 048
     Dates: start: 20200106
  15. INBRIJA [Suspect]
     Active Substance: LEVODOPA
     Indication: PULMONARY CONGESTION
  16. FOLIC ACID. [Concomitant]
     Active Substance: FOLIC ACID
     Indication: SUPPLEMENTATION THERAPY
     Dosage: 400 MICROGRAM, QD
     Route: 048
     Dates: start: 20200106
  17. JANUVIA [Concomitant]
     Active Substance: SITAGLIPTIN PHOSPHATE
     Indication: DIABETES MELLITUS
     Dosage: 100 MILLIGRAM, QD
     Route: 065
  18. JANUVIA [Concomitant]
     Active Substance: SITAGLIPTIN PHOSPHATE
     Dosage: 50 UNK
     Route: 048
     Dates: start: 20200106
  19. OMEPRAZOLE. [Concomitant]
     Active Substance: OMEPRAZOLE
     Indication: GASTROOESOPHAGEAL REFLUX DISEASE
     Dosage: 40 MILLIGRAM, QD
     Route: 048
     Dates: start: 20191030
  20. REXULTI [Concomitant]
     Active Substance: BREXPIPRAZOLE
     Indication: DEPRESSION
     Dosage: 1 MILLIGRAM, QD
     Route: 048
     Dates: start: 20200106
  21. FLUTICASONE FUROATE [Concomitant]
     Active Substance: FLUTICASONE FUROATE
     Indication: EMPHYSEMA
     Dosage: 100-62.5-25 MCG, 1 PUFF PRN, DAILY
  22. OXYGEN. [Concomitant]
     Active Substance: OXYGEN
     Dosage: 4 LPM, O2 CANNULA CONTINOUS, MAY TITRATE 2-5 LPM PRN
     Route: 045
     Dates: start: 20200120
  23. IRON [Concomitant]
     Active Substance: IRON
     Indication: PRODUCT USED FOR UNKNOWN INDICATION
     Dosage: 325 MILLIGRAM (65 MILLIGRAM IRON), QD
     Route: 065
  24. OFEV [Concomitant]
     Active Substance: NINTEDANIB
     Indication: PULMONARY FIBROSIS
     Dosage: 150 MILLIGRAM, QD
     Route: 048
     Dates: start: 20191220
  25. INBRIJA [Suspect]
     Active Substance: LEVODOPA
     Indication: ON AND OFF PHENOMENON
  26. MORPHINE [Concomitant]
     Active Substance: MORPHINE
     Indication: DYSPNOEA
     Dosage: 20 MG/ML 0.25- 1 ML, Q4HRS PRN
     Route: 048
     Dates: start: 20200117
  27. FERROUS SULFATE. [Concomitant]
     Active Substance: FERROUS SULFATE
     Indication: SUPPLEMENTATION THERAPY
     Dosage: 65 MILLIGRAM, 1 TABLET EVERY OTHER DAY
     Route: 048
     Dates: start: 20200106
  28. ONDANSETRON HCL [Concomitant]
     Active Substance: ONDANSETRON HYDROCHLORIDE
     Indication: NAUSEA
     Dosage: 8 MILLIGRAM, Q 8 HRS
     Route: 048
     Dates: start: 20191209
  29. ATIVAN [Concomitant]
     Active Substance: LORAZEPAM
     Indication: PRODUCT USED FOR UNKNOWN INDICATION
     Dosage: 0.5 MILLIGRAM, TAKE 1 IN AM 2QHS
     Route: 065
  30. NORCO [Concomitant]
     Active Substance: ACETAMINOPHEN\HYDROCODONE BITARTRATE
     Indication: PRODUCT USED FOR UNKNOWN INDICATION
     Dosage: 10-325 MG, BID
     Route: 065
  31. OTHER THERAPEUTIC PRODUCTS [Concomitant]
     Active Substance: UNSPECIFIED INGREDIENT
     Indication: GLAUCOMA
     Dosage: UNK, QD
     Route: 065
  32. ROPINIROLE. [Concomitant]
     Active Substance: ROPINIROLE
     Indication: PARKINSON^S DISEASE
     Dosage: 1 MILLIGRAM, QHS
     Route: 048
     Dates: start: 20191212
  33. ROSUVASTATIN. [Concomitant]
     Active Substance: ROSUVASTATIN
     Indication: HYPERLIPIDAEMIA
     Dosage: 40 MILLIGRAM, QHS
     Route: 048
     Dates: start: 20191119
  34. VITAMIN D2 [Concomitant]
     Active Substance: ERGOCALCIFEROL
     Indication: PRODUCT USED FOR UNKNOWN INDICATION
     Dosage: 50000 UNIT, WEEKLY FOR 12 WEEKS
     Route: 048
  35. FLUDROCORTISONE [Concomitant]
     Active Substance: FLUDROCORTISONE
     Indication: ADRENAL INSUFFICIENCY
     Dosage: 0.1 MILLIGRAM, 3 TABLETS QD
     Route: 048
     Dates: start: 20200106
  36. ACETAMINOPHEN W/HYDROCODONE [Concomitant]
     Active Substance: ACETAMINOPHEN\HYDROCODONE
     Indication: PAIN
     Dosage: 10-325 MG, BID
     Route: 048
     Dates: start: 20200102
  37. FLUTICASONE FUROATE W/VILANTEROL [Concomitant]
     Active Substance: FLUTICASONE FUROATE\VILANTEROL TRIFENATATE
     Indication: EMPHYSEMA
     Dosage: 100-62.5-25 MCG 1 PUFF
     Dates: start: 20191212
  38. LOSARTAN POTASSIUM. [Concomitant]
     Active Substance: LOSARTAN POTASSIUM
     Indication: BLOOD PRESSURE ABNORMAL
     Dosage: 25 MILLIGRAM 1/2-1 QD
     Route: 048
     Dates: start: 20191119
  39. BIOFREEZE [Concomitant]
     Active Substance: MENTHOL
     Indication: PAIN
     Dosage: THIN LAYER, PRN, QID
     Route: 061
     Dates: start: 20200120
  40. VITAMIN D3 [Concomitant]
     Active Substance: CHOLECALCIFEROL
     Indication: SUPPLEMENTATION THERAPY
     Dosage: 125 MICROGRAM, QD
     Route: 048
     Dates: start: 20200106

REACTIONS (8)
  - Cough [Not Recovered/Not Resolved]
  - Off label use [Unknown]
  - Mobility decreased [Unknown]
  - Saliva discolouration [Not Recovered/Not Resolved]
  - Ill-defined disorder [Unknown]
  - Condition aggravated [Unknown]
  - Disease progression [Unknown]
  - Weight decreased [Unknown]
